FAERS Safety Report 21356667 (Version 2)
Quarter: 2022Q4

REPORT INFORMATION
  Report Type: Spontaneous
  Country: CA (occurrence: CA)
  Receive Date: 20220920
  Receipt Date: 20221021
  Transmission Date: 20230113
  Serious: Yes (Other)
  Sender: FDA-Public Use
  Company Number: CA-AMERICAN REGENT INC-2022002691

PATIENT
  Age: 25 Year
  Sex: Female

DRUGS (2)
  1. VENOFER [Suspect]
     Active Substance: IRON SUCROSE
     Indication: Iron deficiency anaemia
     Dosage: UNK UNK, SINGLE
     Route: 065
     Dates: start: 202204, end: 202204
  2. VENOFER [Suspect]
     Active Substance: IRON SUCROSE
     Dosage: 300 MILLIGRAM 250ML NORMAL SALINE
     Dates: start: 20220503, end: 20220503

REACTIONS (7)
  - Burning sensation [Unknown]
  - Chest pain [Unknown]
  - Dizziness [Unknown]
  - Dyspnoea [Unknown]
  - Peripheral swelling [Recovered/Resolved]
  - Incorrect product administration duration [Unknown]
  - Product quality issue [Unknown]

NARRATIVE: CASE EVENT DATE: 20220401
